FAERS Safety Report 8839455 (Version 2)
Quarter: 2012Q4

REPORT INFORMATION
  Report Type: 
  Country: IT (occurrence: IT)
  Receive Date: 20121015
  Receipt Date: 20121112
  Transmission Date: 20130627
  Serious: Yes (Hospitalization)
  Sender: FDA-Public Use
  Company Number: IT-JNJFOC-20121007306

PATIENT
  Age: 84 Year
  Sex: Male

DRUGS (12)
  1. CONTRAMAL [Suspect]
     Indication: PAIN IN EXTREMITY
     Route: 048
     Dates: start: 20120919, end: 20120928
  2. DUROGESIC [Suspect]
     Indication: PAIN IN EXTREMITY
     Route: 062
     Dates: start: 20120928, end: 20120928
  3. TACHIDOL [Suspect]
     Indication: PAIN IN EXTREMITY
     Route: 048
     Dates: start: 20120919, end: 20120928
  4. PARIET [Concomitant]
     Route: 048
  5. BARACLUDE [Concomitant]
     Indication: CHRONIC HEPATITIS B
     Route: 048
  6. SANDIMMUN [Concomitant]
     Indication: TRANSPLANT EVALUATION
     Route: 048
  7. PLAVIX [Concomitant]
     Route: 065
  8. AVODART [Concomitant]
     Route: 065
  9. NITRODERM MATRIX [Concomitant]
     Route: 062
  10. NICETILE [Concomitant]
     Route: 048
  11. BISOPROLOL HEMIFUMARATE [Concomitant]
     Route: 065
  12. DELTACORTENE [Concomitant]
     Route: 048

REACTIONS (3)
  - Confusional state [Recovered/Resolved]
  - Myoclonus [Recovered/Resolved]
  - Hallucination, visual [Recovered/Resolved]
